FAERS Safety Report 8835683 (Version 3)
Quarter: 2012Q4

REPORT INFORMATION
  Report Type: 
  Country: US (occurrence: US)
  Receive Date: 20121011
  Receipt Date: 20121107
  Transmission Date: 20130627
  Serious: Yes (Other)
  Sender: FDA-Public Use
  Company Number: US-BAYER-2012-104195

PATIENT
  Age: 27 Year
  Sex: Female
  Weight: 88.89 kg

DRUGS (6)
  1. MIRENA [Suspect]
     Indication: CONTRACEPTION
     Dosage: 20 mcg/24hr, CONT
     Route: 015
     Dates: start: 20111011, end: 20120828
  2. MAXALT [Concomitant]
     Indication: MIGRAINE
     Dosage: 10 mg, PRN
  3. LORATADINE [Concomitant]
     Indication: CHRONIC SINUSITIS
     Dosage: 10 mg, QD
     Route: 048
  4. SINGULAIR [Concomitant]
     Indication: CHRONIC SINUSITIS
     Dosage: 10 mg, HS
  5. AURALGAN [BENZOCAINE,HYDROXYQUINOLINE SULFATE] [Concomitant]
     Indication: OTITIS MEDIA SEROUS
     Dosage: 3 drops each ear thrice daily, PRN
     Route: 001
  6. LEVOTHYROXINE [Concomitant]
     Indication: HYPOTHYROIDISM
     Dosage: 25 ?g, QD
     Route: 048

REACTIONS (4)
  - Device dislocation [Recovered/Resolved]
  - Metrorrhagia [Recovered/Resolved]
  - Abdominal pain [Recovered/Resolved]
  - Device deployment issue [None]
